FAERS Safety Report 25373175 (Version 1)
Quarter: 2025Q2

REPORT INFORMATION
  Report Type: Spontaneous
  Country: US (occurrence: US)
  Receive Date: 20250529
  Receipt Date: 20250529
  Transmission Date: 20250716
  Serious: No
  Sender: CIPLA
  Company Number: US-CIPLA LTD.-2024US09840

PATIENT

DRUGS (3)
  1. ALBUTEROL [Suspect]
     Active Substance: ALBUTEROL
     Indication: Asthma
  2. ALBUTEROL [Suspect]
     Active Substance: ALBUTEROL
     Indication: Wheezing
  3. ALBUTEROL [Suspect]
     Active Substance: ALBUTEROL
     Indication: Hypersensitivity
     Dates: start: 2024

REACTIONS (7)
  - Dyspnoea [Recovered/Resolved]
  - Product dose omission issue [Unknown]
  - Wrong technique in product usage process [Unknown]
  - Device delivery system issue [Unknown]
  - Device malfunction [Unknown]
  - Product quality issue [Unknown]
  - Device mechanical issue [Unknown]

NARRATIVE: CASE EVENT DATE: 20240101
